FAERS Safety Report 13707252 (Version 1)
Quarter: 2017Q2

REPORT INFORMATION
  Report Type: Report from Study
  Country: None (occurrence: US)
  Receive Date: 20170630
  Receipt Date: 20170630
  Transmission Date: 20170830
  Serious: No
  Sender: FDA-Public Use
  Company Number: US-IPSEN BIOPHARMACEUTICALS, INC.-2013-4649

PATIENT
  Sex: Female

DRUGS (5)
  1. LEVOTHYROXINE. [Concomitant]
     Active Substance: LEVOTHYROXINE
     Indication: HYPOTHYROIDISM
     Dosage: 100 MCG
     Route: 065
  2. SOMATULINE DEPOT [Suspect]
     Active Substance: LANREOTIDE ACETATE
     Indication: ACROMEGALY
     Route: 058
     Dates: start: 20120315
  3. PREDNISONE. [Concomitant]
     Active Substance: PREDNISONE
     Indication: CORTISOL DECREASED
     Route: 065
  4. LOW ESTROGEN TRINESSA BC [Concomitant]
     Indication: CONTRACEPTION
     Dosage: NOT REPORTED
     Route: 048
  5. DESMOPRESSIN ACETATE. [Concomitant]
     Active Substance: DESMOPRESSIN ACETATE
     Indication: DIABETES INSIPIDUS
     Dosage: 1/2 TABLET TWICE DAILY
     Route: 048

REACTIONS (2)
  - Injection site pruritus [None]
  - Injection site pain [None]
